FAERS Safety Report 10469629 (Version 1)
Quarter: 2014Q3

REPORT INFORMATION
  Report Type: Spontaneous
  Country: US (occurrence: None)
  Receive Date: 20140922
  Receipt Date: 20140922
  Transmission Date: 20150326
  Serious: Yes (Other)
  Sender: FDA-Public Use
  Company Number: None

PATIENT
  Age: 58 Year
  Sex: Female
  Weight: 129.28 kg

DRUGS (1)
  1. BENICAR [Suspect]
     Active Substance: OLMESARTAN MEDOXOMIL
     Indication: BLOOD PRESSURE INCREASED
     Dosage: 1 AT HS ONCE DAILY TAKEN BY MOUTH
     Route: 048
     Dates: start: 20111118, end: 20130703

REACTIONS (7)
  - Disturbance in attention [None]
  - Dry mouth [None]
  - Influenza like illness [None]
  - Pain [None]
  - Fibromyalgia [None]
  - Dental caries [None]
  - Tooth disorder [None]

NARRATIVE: CASE EVENT DATE: 20130703
